FAERS Safety Report 9669114 (Version 1)
Quarter: 2013Q4

REPORT INFORMATION
  Report Type: Not Available
  Country: FR (occurrence: FR)
  Receive Date: 20131105
  Receipt Date: 20131105
  Transmission Date: 20140711
  Serious: Yes (Hospitalization)
  Sender: FDA-Public Use
  Company Number: FR-ASTELLAS-2013EU009483

PATIENT
  Age: 65 Year
  Sex: Female

DRUGS (6)
  1. MYCAMINE [Suspect]
     Indication: INFECTION PROPHYLAXIS
     Dosage: 50 MG, UNKNOWN/D
     Route: 042
     Dates: start: 20130730, end: 20130730
  2. FUNGIZONE [Concomitant]
     Dosage: UNK
     Route: 048
  3. ZELITREX [Concomitant]
     Indication: ANTIVIRAL PROPHYLAXIS
     Dosage: 1 G, UNKNOWN/D
     Route: 048
  4. LEVOTHYROX [Concomitant]
     Indication: HYPOTHYROIDISM
     Dosage: 100 MG, UNKNOWN/D
     Route: 048
  5. TAVANIC [Concomitant]
     Dosage: UNK
     Route: 048
  6. TAZOCILLINE [Concomitant]
     Dosage: UNK
     Route: 048
     Dates: start: 20130727

REACTIONS (1)
  - Sinus bradycardia [Recovered/Resolved]
